FAERS Safety Report 18420672 (Version 1)
Quarter: 2020Q4

REPORT INFORMATION
  Report Type: Spontaneous
  Country: GB (occurrence: GB)
  Receive Date: 20201023
  Receipt Date: 20201023
  Transmission Date: 20210114
  Serious: Yes (Hospitalization)
  Sender: FDA-Public Use
  Company Number: GB-ALVOGEN-2020-ALVOGEN-114989

PATIENT
  Age: 18 Year
  Sex: Female

DRUGS (2)
  1. PREDNISOLONE. [Concomitant]
     Active Substance: PREDNISOLONE
     Indication: MOUTH ULCERATION
  2. DAPSONE. [Suspect]
     Active Substance: DAPSONE
     Indication: MOUTH ULCERATION

REACTIONS (2)
  - Methaemoglobinaemia [Recovering/Resolving]
  - Dyspnoea [Unknown]
